FAERS Safety Report 7850058-2 (Version None)
Quarter: 2011Q4

REPORT INFORMATION
  Report Type: 
  Country: None (occurrence: None)
  Receive Date: 20111026
  Receipt Date: 20111014
  Transmission Date: 20120403
  Serious: Yes (Other)
  Sender: FDA-Public Use
  Company Number: US-BAYER-2011-027499

PATIENT
  Age: 29 Year
  Sex: Female
  Weight: 72.562 kg

DRUGS (1)
  1. DROSPIRENONE AND ETHINYL ESTRADIOL [Suspect]
     Route: 048

REACTIONS (8)
  - GENERAL PHYSICAL HEALTH DETERIORATION [None]
  - ANXIETY [None]
  - ANHEDONIA [None]
  - EMOTIONAL DISTRESS [None]
  - ARRHYTHMIA [None]
  - HYPERTENSION [None]
  - MUSCLE SPASMS [None]
  - PAIN [None]
